FAERS Safety Report 6408123-2 (Version None)
Quarter: 2009Q4

REPORT INFORMATION
  Report Type: 
  Country: None (occurrence: None)
  Receive Date: 20091019
  Receipt Date: 20091008
  Transmission Date: 20100525
  Serious: No
  Sender: FDA-Public Use
  Company Number: 2009011244

PATIENT

DRUGS (3)
  1. FENTORA [Suspect]
     Indication: CANCER PAIN
     Dosage: 400 MCG, EVERY 3 HOURS FOR MODERATE PAIN), BU; 800 MCG, EVERY 3 HOURS FOR MODERATE PAIN), BU
     Route: 002
  2. OXYCONTIN (OXYCODNE HYDROCHLORIDE) [Concomitant]
  3. DILAUDID [Concomitant]

REACTIONS (1)
  - DRUG PRESCRIBING ERROR [None]
